FAERS Safety Report 21217253 (Version 10)
Quarter: 2023Q4

REPORT INFORMATION
  Report Type: Spontaneous
  Country: US (occurrence: US)
  Receive Date: 20220816
  Receipt Date: 20231228
  Transmission Date: 20240110
  Serious: Yes (Hospitalization, Other)
  Sender: FDA-Public Use
  Company Number: US-BRISTOL-MYERS SQUIBB COMPANY-2022-089006

PATIENT
  Age: 81 Year
  Sex: Female
  Weight: 98.5 kg

DRUGS (9)
  1. ELIQUIS [Suspect]
     Active Substance: APIXABAN
     Indication: Deep vein thrombosis
     Route: 048
     Dates: start: 20220619, end: 20220806
  2. RITUXAN [Suspect]
     Active Substance: RITUXIMAB
     Indication: Diffuse large B-cell lymphoma
     Dosage: DAY 1, 8. 15, 22 OF 1ST 28-DAY CYCLE, THEN DAY 1 OF SUBSEQUENT 21-DAY CYCLES
     Route: 042
     Dates: start: 20220718, end: 20220908
  3. ZOVIRAX [Concomitant]
     Active Substance: ACYCLOVIR
     Indication: Infection prophylaxis
  4. ZYLOPRIM [Concomitant]
     Active Substance: ALLOPURINOL
     Indication: Tumour lysis syndrome
  5. LASIX [Concomitant]
     Active Substance: FUROSEMIDE
     Indication: Oedema peripheral
  6. ZOCOR [Concomitant]
     Active Substance: SIMVASTATIN
     Indication: Hypertension
  7. ZOCOR [Concomitant]
     Active Substance: SIMVASTATIN
     Indication: Cardiac failure congestive
  8. ALDACTONE [Concomitant]
     Active Substance: SPIRONOLACTONE
     Indication: Hypertension
  9. ALDACTONE [Concomitant]
     Active Substance: SPIRONOLACTONE
     Indication: Cardiac failure congestive

REACTIONS (1)
  - Large intestinal haemorrhage [Recovered/Resolved]

NARRATIVE: CASE EVENT DATE: 20220807
